FAERS Safety Report 10510003 (Version 1)
Quarter: 2014Q4

REPORT INFORMATION
  Report Type: Not Available
  Country: GB (occurrence: GB)
  Receive Date: 20141010
  Receipt Date: 20141010
  Transmission Date: 20150528
  Serious: No
  Sender: FDA-Public Use
  Company Number: GB-LUPIN PHARMACEUTICALS INC.-2014-01341

PATIENT
  Age: 79 Year
  Sex: Female

DRUGS (2)
  1. CEFALEXIN 500MG CAPSULES [Suspect]
     Active Substance: CEPHALEXIN
     Indication: RESPIRATORY DISORDER
     Route: 048
  2. CEFALEXIN 500MG CAPSULES [Suspect]
     Active Substance: CEPHALEXIN
     Indication: DYSPNOEA

REACTIONS (3)
  - Product odour abnormal [Unknown]
  - Product taste abnormal [Unknown]
  - Vomiting [Unknown]
